FAERS Safety Report 7964367-X (Version None)
Quarter: 2011Q4

REPORT INFORMATION
  Report Type: 
  Country: None (occurrence: None)
  Receive Date: 20111208
  Receipt Date: 20111205
  Transmission Date: 20120403
  Serious: Yes (Other)
  Sender: FDA-Public Use
  Company Number: CH-PFIZER INC-2011298460

PATIENT
  Age: 50 Year
  Sex: Female
  Weight: 59.7 kg

DRUGS (8)
  1. OXYCONTIN [Suspect]
     Indication: VISCERAL PAIN
     Dosage: 10 MG THREE TO FOUR TIMES DAILY
     Route: 048
     Dates: start: 20110628
  2. LYRICA [Suspect]
     Indication: ANXIETY
  3. TORAMID [Concomitant]
     Dosage: 10 MG, 1X/DAY
     Route: 048
     Dates: start: 20110708
  4. EFFEXOR XR [Concomitant]
     Dosage: 75 MG, 1X/DAY
     Route: 048
     Dates: start: 20100101
  5. LYRICA [Suspect]
     Indication: VISCERAL PAIN
  6. CREON [Concomitant]
     Dosage: 25000 IU, 4X/DAY
     Route: 048
     Dates: start: 20110708
  7. LYRICA [Suspect]
     Indication: DEPRESSION
     Dosage: 50 TO 75 MG THREE TO FOUR TIMES DAILY
     Route: 048
     Dates: start: 20110628
  8. TENORMIN [Concomitant]
     Dosage: 100 MG, 1X/DAY
     Route: 048
     Dates: start: 20100101

REACTIONS (3)
  - DISTURBANCE IN ATTENTION [None]
  - VISION BLURRED [None]
  - SLEEP ATTACKS [None]
